FAERS Safety Report 4694248-9 (Version None)
Quarter: 2005Q2

REPORT INFORMATION
  Report Type: 
  Country: None (occurrence: None)
  Receive Date: 20050620
  Receipt Date: 20050321
  Transmission Date: 20051028
  Serious: Yes (Hospitalization)
  Sender: FDA-Public Use
  Company Number: DE-RB-1423-2005

PATIENT
  Sex: Male

DRUGS (2)
  1. BUPRENORPHINE HCL [Suspect]
     Indication: DRUG DEPENDENCE
     Dosage: DOSAGE UNKNOWN
     Route: 060
  2. METHADONE HCL [Concomitant]
     Indication: INTENTIONAL MISUSE
     Dosage: 100 MG ONCE FOR MISUSE
     Route: 048

REACTIONS (1)
  - CARDIOVASCULAR DISORDER [None]
